FAERS Safety Report 20317901 (Version 1)
Quarter: 2022Q1

REPORT INFORMATION
  Report Type: Spontaneous
  Country: US (occurrence: None)
  Receive Date: 20220110
  Receipt Date: 20220110
  Transmission Date: 20220423
  Serious: Yes (Hospitalization)
  Sender: FDA-Public Use
  Company Number: None

PATIENT
  Age: 43 Year
  Sex: Male

DRUGS (1)
  1. TEMOZOLOMIDE [Suspect]
     Active Substance: TEMOZOLOMIDE
     Indication: Brain neoplasm
     Dosage: OTHER FREQUENCY : OTHER;?
     Route: 048
     Dates: start: 202108

REACTIONS (3)
  - Unresponsive to stimuli [None]
  - Balance disorder [None]
  - Deafness [None]

NARRATIVE: CASE EVENT DATE: 20211228
